FAERS Safety Report 8511128-9 (Version None)
Quarter: 2012Q3

REPORT INFORMATION
  Report Type: 
  Country: None (occurrence: None)
  Receive Date: 20120716
  Receipt Date: 20120709
  Transmission Date: 20120928
  Serious: Yes (Other)
  Sender: FDA-Public Use
  Company Number: CA-JNJFOC-20120604904

PATIENT
  Sex: Female
  Weight: 95.2 kg

DRUGS (4)
  1. REMICADE [Suspect]
     Indication: CROHN'S DISEASE
     Route: 042
     Dates: start: 20100430
  2. PLAQUENIL [Concomitant]
     Route: 065
  3. REMICADE [Suspect]
     Route: 042
     Dates: start: 20120608
  4. DIOVAN [Concomitant]
     Route: 065

REACTIONS (4)
  - INFUSION RELATED REACTION [None]
  - PRURITUS [None]
  - CHOLECYSTECTOMY [None]
  - RASH MACULAR [None]
